APPROVED DRUG PRODUCT: MOTPOLY XR
Active Ingredient: LACOSAMIDE
Strength: 100MG
Dosage Form/Route: CAPSULE, EXTENDED RELEASE;ORAL
Application: N216185 | Product #001
Applicant: AUCTA PHARMACEUTICALS INC
Approved: May 4, 2023 | RLD: Yes | RS: No | Type: RX

PATENTS:
Patent 11337943 | Expires: Jun 5, 2040
Patent 12042474 | Expires: Jun 5, 2040
Patent 12042474 | Expires: Jun 5, 2040
Patent 11883374 | Expires: Jun 5, 2040
Patent 11883374 | Expires: Jun 5, 2040
Patent 11337943 | Expires: Jun 5, 2040